FAERS Safety Report 10287124 (Version 1)
Quarter: 2014Q3

REPORT INFORMATION
  Report Type: Spontaneous
  Country: PE (occurrence: PE)
  Receive Date: 20140709
  Receipt Date: 20140709
  Transmission Date: 20150326
  Serious: Yes (Other)
  Sender: FDA-Public Use
  Company Number: PE-JNJFOC-20140703444

PATIENT
  Age: 60 Year
  Sex: Female

DRUGS (2)
  1. REMICADE [Suspect]
     Active Substance: INFLIXIMAB
     Indication: PRODUCT USED FOR UNKNOWN INDICATION
     Route: 042
     Dates: start: 20140503
  2. REMICADE [Suspect]
     Active Substance: INFLIXIMAB
     Indication: PRODUCT USED FOR UNKNOWN INDICATION
     Route: 042

REACTIONS (5)
  - Pain [Recovered/Resolved]
  - Body temperature increased [Recovered/Resolved]
  - Skin exfoliation [Recovered/Resolved]
  - Skin burning sensation [Recovered/Resolved]
  - Skin haemorrhage [Recovered/Resolved]

NARRATIVE: CASE EVENT DATE: 20140506
